FAERS Safety Report 21267844 (Version 1)
Quarter: 2022Q3

REPORT INFORMATION
  Report Type: Spontaneous
  Country: US (occurrence: US)
  Receive Date: 20220829
  Receipt Date: 20220829
  Transmission Date: 20221027
  Serious: No
  Sender: FDA-Public Use
  Company Number: US-ELI_LILLY_AND_COMPANY-US202208009110

PATIENT
  Age: 43 Year

DRUGS (1)
  1. BEBTELOVIMAB [Suspect]
     Active Substance: BEBTELOVIMAB
     Indication: COVID-19
     Dosage: UNK UNK, SINGLE
     Route: 065
     Dates: start: 20220816, end: 20220816

REACTIONS (6)
  - Dizziness [Unknown]
  - Pallor [Unknown]
  - Dysmenorrhoea [Unknown]
  - Hyperhidrosis [Unknown]
  - Thinking abnormal [Unknown]
  - Vaginal haemorrhage [Unknown]

NARRATIVE: CASE EVENT DATE: 20220816
